FAERS Safety Report 4565176-4 (Version None)
Quarter: 2005Q1

REPORT INFORMATION
  Report Type: 
  Country: None (occurrence: None)
  Receive Date: 20050127
  Receipt Date: 20050127
  Transmission Date: 20050727
  Serious: Yes (Other)
  Sender: FDA-Public Use
  Company Number: None

PATIENT
  Age: 61 Year
  Sex: Female

DRUGS (2)
  1. ACTOS [Suspect]
     Indication: DIABETES MELLITUS
     Dosage: 30MG  1-2 TABS DAILY  BY MOUTH
     Route: 048
     Dates: start: 20041210
  2. ACTOS [Suspect]
     Indication: DIABETES MELLITUS
     Dosage: 30MG  1-2 TABS DAILY  BY MOUTH
     Route: 048
     Dates: start: 20050121

REACTIONS (1)
  - BLOOD GLUCOSE FLUCTUATION [None]
